FAERS Safety Report 16899296 (Version 1)
Quarter: 2019Q4

REPORT INFORMATION
  Report Type: Spontaneous
  Country: US (occurrence: US)
  Receive Date: 20191008
  Receipt Date: 20191008
  Transmission Date: 20200122
  Serious: Yes (Other)
  Sender: FDA-Public Use
  Company Number: None

PATIENT
  Age: 62 Year
  Sex: Female
  Weight: 72 kg

DRUGS (10)
  1. XANAX [Concomitant]
     Active Substance: ALPRAZOLAM
  2. MAGNESIUM [Concomitant]
     Active Substance: MAGNESIUM
  3. LYSINE [Concomitant]
     Active Substance: LYSINE
  4. ZANTAC [Suspect]
     Active Substance: RANITIDINE HYDROCHLORIDE
     Indication: DYSPEPSIA
     Dosage: ?          QUANTITY:1 TABLET(S);?
     Route: 048
  5. BIOTIN [Concomitant]
     Active Substance: BIOTIN
  6. MULTIVITAMIN [Concomitant]
     Active Substance: VITAMINS
  7. ESTRIDAL [Concomitant]
  8. CALCIUM  W/VITAMIN D [Concomitant]
     Active Substance: CALCIUM\VITAMIN D
  9. ZINC. [Concomitant]
     Active Substance: ZINC
  10. OMEGA 3 [Concomitant]
     Active Substance: OMEGA-3 FATTY ACIDS

REACTIONS (2)
  - Memory impairment [None]
  - Amnesia [None]
